FAERS Safety Report 25990388 (Version 1)
Quarter: 2025Q4

REPORT INFORMATION
  Report Type: Spontaneous
  Country: CO (occurrence: CO)
  Receive Date: 20251103
  Receipt Date: 20251103
  Transmission Date: 20260118
  Serious: Yes (Other)
  Sender: BAYER HEALTHCARE PHARMACEUTICALS INC.
  Company Number: CO-BAYER-2025A143968

PATIENT
  Age: 55 Year
  Sex: Female

DRUGS (1)
  1. BETAFERON [Suspect]
     Active Substance: INTERFERON BETA-1B
     Indication: Multiple sclerosis
     Dosage: UNK
     Dates: start: 2006, end: 202507

REACTIONS (4)
  - Multiple sclerosis relapse [None]
  - Gait disturbance [None]
  - Hypoaesthesia oral [None]
  - Product supply issue [None]

NARRATIVE: CASE EVENT DATE: 20251019
